FAERS Safety Report 4465336-7 (Version None)
Quarter: 2004Q3

REPORT INFORMATION
  Report Type: 
  Country: None (occurrence: None)
  Receive Date: 20040929
  Receipt Date: 20040917
  Transmission Date: 20050211
  Serious: Yes (Hospitalization)
  Sender: FDA-Public Use
  Company Number: 2004068254

PATIENT
  Sex: Female

DRUGS (1)
  1. BENADRYL [Suspect]
     Indication: ILL-DEFINED DISORDER

REACTIONS (4)
  - DYSGEUSIA [None]
  - HEAD DISCOMFORT [None]
  - MALAISE [None]
  - ROAD TRAFFIC ACCIDENT [None]
